FAERS Safety Report 20258607 (Version 4)
Quarter: 2022Q1

REPORT INFORMATION
  Report Type: Report from Study
  Country: US (occurrence: US)
  Receive Date: 20211230
  Receipt Date: 20220111
  Transmission Date: 20220423
  Serious: Yes (Hospitalization)
  Sender: FDA-Public Use
  Company Number: US-BAYER-2021A275699

PATIENT
  Sex: Female
  Weight: 51.61 kg

DRUGS (4)
  1. ADEMPAS [Suspect]
     Active Substance: RIOCIGUAT
     Indication: Pulmonary arterial hypertension
     Dosage: UNK
     Dates: start: 20211220
  2. ADEMPAS [Suspect]
     Active Substance: RIOCIGUAT
     Indication: Pulmonary arterial hypertension
     Dosage: 1.5 MG, TID
     Route: 048
  3. VELETRI [Concomitant]
     Active Substance: EPOPROSTENOL
     Dosage: UNK
     Dates: start: 2021
  4. OPSUMIT [Concomitant]
     Active Substance: MACITENTAN

REACTIONS (17)
  - Hospitalisation [None]
  - Nervousness [None]
  - Anxiety [None]
  - Fatigue [None]
  - Pain in jaw [None]
  - Sinus pain [None]
  - Dizziness [Not Recovered/Not Resolved]
  - Nausea [None]
  - Headache [Not Recovered/Not Resolved]
  - Dyspnoea [Recovered/Resolved]
  - Balance disorder [None]
  - Dizziness postural [None]
  - Dry mouth [None]
  - Flushing [None]
  - Muscle tightness [None]
  - Constipation [None]
  - Orthostatic hypotension [None]
